FAERS Safety Report 23683708 (Version 6)
Quarter: 2025Q4

REPORT INFORMATION
  Report Type: Spontaneous
  Country: US (occurrence: US)
  Receive Date: 20240328
  Receipt Date: 20251015
  Transmission Date: 20260117
  Serious: No
  Sender: SANOFI AVENTIS
  Company Number: US-SA-SAC20240327000645

PATIENT
  Age: 43 Year
  Sex: Female
  Weight: 10 kg

DRUGS (4)
  1. DUPIXENT [Suspect]
     Active Substance: DUPILUMAB
     Indication: Chronic obstructive pulmonary disease
     Dosage: 300 MG, QOW
     Route: 058
  2. DUPIXENT [Suspect]
     Active Substance: DUPILUMAB
     Indication: Asthma
     Dosage: 300 MG, QOW
     Route: 058
     Dates: start: 202402
  3. DUPIXENT [Suspect]
     Active Substance: DUPILUMAB
     Indication: Eczema
     Dosage: 300 MG, QOW
     Route: 058
     Dates: start: 20240826
  4. DUPIXENT [Suspect]
     Active Substance: DUPILUMAB
     Indication: Hypersensitivity

REACTIONS (19)
  - SARS-CoV-2 test positive [Unknown]
  - Ear disorder [Unknown]
  - Pyrexia [Unknown]
  - Swelling [Unknown]
  - Dyspnoea [Unknown]
  - Paranasal sinus discomfort [Unknown]
  - Sinus pain [Unknown]
  - Bronchitis [Recovering/Resolving]
  - Nocturnal dyspnoea [Recovering/Resolving]
  - Illness [Unknown]
  - Myalgia [Unknown]
  - Nasopharyngitis [Unknown]
  - Injection site pain [Recovered/Resolved]
  - Asthma [Unknown]
  - Spinal fusion surgery [Unknown]
  - Incorrect dose administered [Unknown]
  - Product prescribing issue [Unknown]
  - Product use in unapproved indication [Unknown]
  - Product dose omission in error [Unknown]

NARRATIVE: CASE EVENT DATE: 20240201
